FAERS Safety Report 6902165-6 (Version None)
Quarter: 2010Q3

REPORT INFORMATION
  Report Type: 
  Country: None (occurrence: None)
  Receive Date: 20100803
  Receipt Date: 20100729
  Transmission Date: 20110219
  Serious: Yes (Other)
  Sender: FDA-Public Use
  Company Number: US-MERCK-1007USA03871

PATIENT
  Sex: Male

DRUGS (18)
  1. COZAAR [Suspect]
     Route: 048
  2. FELDENE [Suspect]
     Route: 065
  3. GABAPENTIN [Suspect]
     Route: 065
  4. FOLIC ACID [Suspect]
     Route: 065
  5. DIGOXIN [Suspect]
     Route: 065
  6. ATENOLOL [Suspect]
     Route: 065
  7. ZYRTEC [Suspect]
     Route: 048
  8. TRAMADOL HYDROCHLORIDE [Suspect]
     Route: 065
  9. NORVIR [Suspect]
     Route: 048
  10. FERROUS SULFATE [Suspect]
     Route: 065
  11. DIPHENHYDRAMINE HYDROCHLORIDE [Suspect]
     Route: 065
  12. LOPERAMIDE HYDROCHLORIDE [Suspect]
     Route: 065
  13. ATROVENT [Suspect]
     Route: 065
  14. LEXAPRO [Suspect]
     Route: 048
  15. EPOGEN [Suspect]
     Route: 065
  16. ABILIFY [Suspect]
     Route: 065
  17. CARVEDILOL [Suspect]
     Route: 065
  18. SEROQUEL [Suspect]
     Route: 065

REACTIONS (2)
  - DRUG INTERACTION [None]
  - RASH [None]
